FAERS Safety Report 6554979-2 (Version None)
Quarter: 2010Q1

REPORT INFORMATION
  Report Type: 
  Country: None (occurrence: None)
  Receive Date: 20100126
  Receipt Date: 20100126
  Transmission Date: 20100710
  Serious: Yes (Other)
  Sender: FDA-Public Use
  Company Number: None

PATIENT
  Sex: Female
  Weight: 83.4619 kg

DRUGS (2)
  1. RESTASIS [Suspect]
     Indication: DRY EYE
     Dosage: 1 DROP IN EACH EYE 2 X DAILY PRN OPTHALMIC
     Route: 047
     Dates: start: 20100121, end: 20100121
  2. RESTASIS [Suspect]
     Indication: SICCA SYNDROME
     Dosage: 1 DROP IN EACH EYE 2 X DAILY PRN OPTHALMIC
     Route: 047
     Dates: start: 20100121, end: 20100121

REACTIONS (1)
  - VISION BLURRED [None]
